FAERS Safety Report 20727353 (Version 5)
Quarter: 2022Q4

REPORT INFORMATION
  Report Type: Report from Study
  Country: CA (occurrence: CA)
  Receive Date: 20220419
  Receipt Date: 20221111
  Transmission Date: 20230112
  Serious: Yes (Other)
  Sender: FDA-Public Use
  Company Number: CA-BAUSCH-BL-2022-007643

PATIENT
  Sex: Male

DRUGS (8)
  1. CONTRAVE [Suspect]
     Active Substance: BUPROPION HYDROCHLORIDE\NALTREXONE HYDROCHLORIDE
     Indication: Weight control
     Dosage: 8/90MG, 1 TAB DAILY
     Route: 048
     Dates: start: 20220301, end: 20220307
  2. CONTRAVE [Suspect]
     Active Substance: BUPROPION HYDROCHLORIDE\NALTREXONE HYDROCHLORIDE
     Dosage: 8/90MG, 1 TAB BID
     Route: 048
     Dates: start: 20220308, end: 20220314
  3. CONTRAVE [Suspect]
     Active Substance: BUPROPION HYDROCHLORIDE\NALTREXONE HYDROCHLORIDE
     Dosage: 8/90MG, 2 TABS IN MORNING, 1 TAB IN EVENING
     Route: 048
     Dates: start: 20220315, end: 20220321
  4. CONTRAVE [Suspect]
     Active Substance: BUPROPION HYDROCHLORIDE\NALTREXONE HYDROCHLORIDE
     Dosage: 8/90MG, 2 TABS BID
     Route: 048
     Dates: start: 20220322
  5. CONTRAVE [Suspect]
     Active Substance: BUPROPION HYDROCHLORIDE\NALTREXONE HYDROCHLORIDE
     Dosage: 8/90MG, 2 TABS BID
     Route: 048
     Dates: start: 20221101
  6. GLICLAZIDE [Concomitant]
     Active Substance: GLICLAZIDE
     Indication: Diabetes mellitus
     Dosage: (60 MG)
     Route: 048
  7. SYMBICORT [Concomitant]
     Active Substance: BUDESONIDE\FORMOTEROL FUMARATE DIHYDRATE
     Indication: Food allergy
     Dosage: PRN (1 IN 1 AS REQUIRED) (INHALATION)
     Route: 055
  8. ALMOTRIPTAN [Concomitant]
     Active Substance: ALMOTRIPTAN
     Indication: Migraine
     Dosage: PRN (12.5 MG,1 IN 1 AS REQUIRED)
     Route: 048

REACTIONS (13)
  - Urinary retention [Not Recovered/Not Resolved]
  - Lung disorder [Unknown]
  - Trigger finger [Not Recovered/Not Resolved]
  - Cough [Unknown]
  - Nasopharyngitis [Not Recovered/Not Resolved]
  - Asthenopia [Unknown]
  - Blood glucose decreased [Unknown]
  - Vision blurred [Not Recovered/Not Resolved]
  - Hyperhidrosis [Unknown]
  - Dizziness [Unknown]
  - Therapy interrupted [Unknown]
  - Drug titration error [Unknown]
  - Product dose omission in error [Unknown]

NARRATIVE: CASE EVENT DATE: 20220101
